FAERS Safety Report 6534387-0 (Version None)
Quarter: 2010Q1

REPORT INFORMATION
  Report Type: 
  Country: None (occurrence: None)
  Receive Date: 20100112
  Receipt Date: 20100108
  Transmission Date: 20100710
  Serious: Yes (Other)
  Sender: FDA-Public Use
  Company Number: CHPA2010US00767

PATIENT
  Sex: Male

DRUGS (1)
  1. MAALOX ANTACID/ANTIGAS MAX QDTABS ASST (NCH) [Suspect]
     Dosage: UNK, UNK
     Route: 048

REACTIONS (1)
  - BLOOD PRESSURE INCREASED [None]
